FAERS Safety Report 4731871-7 (Version None)
Quarter: 2005Q3

REPORT INFORMATION
  Report Type: 
  Country: None (occurrence: None)
  Receive Date: 20050725
  Receipt Date: 20041129
  Transmission Date: 20060218
  Serious: Yes (Life-Threatening, Hospitalization)
  Sender: FDA-Public Use
  Company Number: WAES 0411USA04182

PATIENT
  Age: 51 Year
  Sex: Female

DRUGS (3)
  1. VIOXX [Suspect]
     Indication: PAIN IN EXTREMITY
     Dosage: 25 MG/PRN/PO
     Route: 048
     Dates: start: 20030101, end: 20040101
  2. TYLENOL (CAPLET) [Concomitant]
  3. [THERAPY UNSPECIFIED] [Concomitant]

REACTIONS (4)
  - ASTHENIA [None]
  - BLOOD PRESSURE SYSTOLIC INCREASED [None]
  - CHEST PAIN [None]
  - FATIGUE [None]
